FAERS Safety Report 8208072-3 (Version None)
Quarter: 2012Q1

REPORT INFORMATION
  Report Type: 
  Country: None (occurrence: None)
  Receive Date: 20120314
  Receipt Date: 20120305
  Transmission Date: 20120608
  Serious: Yes (Other)
  Sender: FDA-Public Use
  Company Number: PHHY2012BR019713

PATIENT
  Age: 56 Year
  Sex: Female

DRUGS (5)
  1. PROPRANOLOL [Concomitant]
  2. METFORMIN [Concomitant]
  3. ANGIOTENSIN II ANTAGONISTS [Concomitant]
  4. RASILEZ [Suspect]
     Dosage: 300 MG,
  5. ALENDRONATE SODIUM [Concomitant]

REACTIONS (2)
  - DYSARTHRIA [None]
  - CEREBROVASCULAR ACCIDENT [None]
